FAERS Safety Report 26076704 (Version 1)
Quarter: 2025Q4

REPORT INFORMATION
  Report Type: Spontaneous
  Country: US (occurrence: US)
  Receive Date: 20251121
  Receipt Date: 20251121
  Transmission Date: 20260118
  Serious: Yes (Hospitalization, Other)
  Sender: NOVO NORDISK
  Company Number: US-NOVOPROD-1567749

PATIENT
  Age: 61 Year
  Sex: Male

DRUGS (2)
  1. LEVEMIR [Suspect]
     Active Substance: INSULIN DETEMIR
     Dosage: 25 IU QD(2 HOURS AFTER DINNER))
     Route: 058
     Dates: start: 2014
  2. LEVEMIR [Suspect]
     Active Substance: INSULIN DETEMIR
     Indication: Type 2 diabetes mellitus
     Dosage: 20 IU QD(2 HOURS AFTER DINNER))
     Route: 058
     Dates: start: 2014

REACTIONS (9)
  - Renal failure [Not Recovered/Not Resolved]
  - Blindness [Unknown]
  - Fall [Unknown]
  - Deafness [Unknown]
  - Spinal fracture [Unknown]
  - Brain injury [Unknown]
  - Limb fracture [Unknown]
  - Amputee [Unknown]
  - Rib fracture [Unknown]

NARRATIVE: CASE EVENT DATE: 20161001
